FAERS Safety Report 21194223 (Version 6)
Quarter: 2023Q2

REPORT INFORMATION
  Report Type: Report from Study
  Country: NZ (occurrence: None)
  Receive Date: 20220810
  Receipt Date: 20230503
  Transmission Date: 20230721
  Serious: Yes (Death, Hospitalization)
  Sender: FDA-Public Use
  Company Number: NZ-ROCHE-3154328

PATIENT
  Age: 64 Year
  Sex: Male
  Weight: 86.5 kg

DRUGS (3)
  1. OBINUTUZUMAB [Suspect]
     Active Substance: OBINUTUZUMAB
     Indication: Follicular lymphoma
     Dosage: LAST DOSE PRIOR TO SAE ON 11/MAY/2022, 29/DEC/2022
     Route: 042
     Dates: start: 20210414
  2. ZANUBRUTINIB [Suspect]
     Active Substance: ZANUBRUTINIB
     Indication: Follicular lymphoma
     Dosage: LAST DOSE PRIOR TO SAE ON 05/JUL/2022, 07/FEB/2023, 21/FEB/203
     Route: 048
     Dates: start: 20220511
  3. MORPHINE SULFATE [Concomitant]
     Active Substance: MORPHINE SULFATE
     Indication: Back pain
     Route: 048
     Dates: start: 20230213, end: 20230306

REACTIONS (3)
  - COVID-19 [Recovered/Resolved]
  - Ascites [Not Recovered/Not Resolved]
  - Pneumonia [Fatal]

NARRATIVE: CASE EVENT DATE: 20220705
